FAERS Safety Report 5133885-4 (Version None)
Quarter: 2006Q4

REPORT INFORMATION
  Report Type: 
  Country: None (occurrence: None)
  Receive Date: 20061019
  Receipt Date: 20061003
  Transmission Date: 20070319
  Serious: Yes (Life-Threatening)
  Sender: FDA-Public Use
  Company Number: DSA_28755_2006

PATIENT
  Age: 64 Year
  Sex: Female
  Weight: 72 kg

DRUGS (7)
  1. ATIVAN [Suspect]
     Indication: SLEEP DISORDER
     Dosage: 1 MG Q DAY PO
     Route: 048
  2. STARNOC [Suspect]
     Indication: SLEEP DISORDER
     Dosage: 10 MG QHS PO
     Route: 048
     Dates: start: 20040101, end: 20060101
  3. DEMEROL [Suspect]
     Indication: ANALGESIC EFFECT
     Dosage: DF PRN UNK
     Dates: start: 20060603, end: 20060603
  4. DEMEROL [Suspect]
     Indication: COLONOSCOPY
     Dosage: DF PRN UNK
     Dates: start: 20060603, end: 20060603
  5. VERSED [Suspect]
     Indication: ANALGESIC EFFECT
     Dosage: DF PRN IV
     Route: 042
     Dates: start: 20060603, end: 20060603
  6. VERSED [Suspect]
     Indication: COLONOSCOPY
     Dosage: DF PRN IV
     Route: 042
     Dates: start: 20060603, end: 20060603
  7. XALATAN [Concomitant]

REACTIONS (4)
  - CIRCULATORY COLLAPSE [None]
  - DRUG INTERACTION [None]
  - PROCEDURAL PAIN [None]
  - RESPIRATORY ARREST [None]
